FAERS Safety Report 9401129 (Version 3)
Quarter: 2014Q4

REPORT INFORMATION
  Report Type: Report from Study
  Country: FR (occurrence: FR)
  Receive Date: 20130715
  Receipt Date: 20141110
  Transmission Date: 20150529
  Serious: Yes (Death, Hospitalization)
  Sender: FDA-Public Use
  Company Number: FR-ACTELION-A-CH2013-85691

PATIENT
  Age: 64 Year
  Sex: Female
  Weight: 54 kg

DRUGS (6)
  1. NORSET [Concomitant]
     Active Substance: MIRTAZAPINE
     Dosage: 15 UNK, OD
  2. IMUREL [Concomitant]
     Active Substance: AZATHIOPRINE SODIUM
     Dosage: 50 UNK, OD
  3. TRACLEER [Suspect]
     Active Substance: BOSENTAN\BOSENTAN MONOHYDRATE
     Indication: SCLERODERMA RENAL CRISIS
     Dosage: 125 MG, BID
     Route: 048
     Dates: end: 20130705
  4. TRACLEER [Suspect]
     Active Substance: BOSENTAN\BOSENTAN MONOHYDRATE
     Dosage: 62.5 MG, BID
     Route: 048
     Dates: start: 201304
  5. INEXIUM [Concomitant]
     Active Substance: ESOMEPRAZOLE
     Dosage: 20 UNK, QD
  6. LOPRIL [Concomitant]
     Active Substance: LISINOPRIL
     Dosage: 25 UNK, TID

REACTIONS (12)
  - Acute respiratory failure [Fatal]
  - Microangiopathy [Fatal]
  - Food intolerance [Unknown]
  - Scleroderma renal crisis [Fatal]
  - Malnutrition [Fatal]
  - Disease progression [Fatal]
  - Dehydration [Unknown]
  - Pulmonary arterial hypertension [Fatal]
  - Vomiting [Unknown]
  - Acute kidney injury [Not Recovered/Not Resolved]
  - General physical health deterioration [Fatal]
  - Skin lesion [Fatal]

NARRATIVE: CASE EVENT DATE: 20130624
